FAERS Safety Report 9151785 (Version 2)
Quarter: 2013Q2

REPORT INFORMATION
  Report Type: Spontaneous
  Country: US (occurrence: US)
  Receive Date: 20130308
  Receipt Date: 20130422
  Transmission Date: 20140414
  Serious: Yes (Other)
  Sender: FDA-Public Use
  Company Number: US-PFIZER INC-2013079270

PATIENT
  Sex: Male

DRUGS (3)
  1. CELEBREX [Suspect]
     Dosage: UNK
  2. VOLTAREN [Suspect]
     Indication: ARTHRITIS
     Dosage: UNK
     Route: 061
  3. ASPIRIN [Concomitant]
     Dosage: 2 DF, 1X/DAY (2 DAILY)

REACTIONS (1)
  - Renal failure acute [Unknown]
